FAERS Safety Report 10253202 (Version 1)
Quarter: 2014Q2

REPORT INFORMATION
  Report Type: Spontaneous
  Country: ES (occurrence: ES)
  Receive Date: 20140623
  Receipt Date: 20140623
  Transmission Date: 20141212
  Serious: Yes (Hospitalization)
  Sender: FDA-Public Use
  Company Number: ES-SA-2014SA075728

PATIENT
  Age: 73 Year
  Sex: Male

DRUGS (9)
  1. SEGURIL [Suspect]
     Indication: PRODUCT USED FOR UNKNOWN INDICATION
     Dosage: STRENGTH: 40MG. 10MG TAB
     Route: 048
     Dates: start: 2012
  2. SIMVASTATIN [Interacting]
     Indication: PRODUCT USED FOR UNKNOWN INDICATION
     Route: 065
     Dates: start: 2012
  3. DIGOXIN [Interacting]
     Indication: PRODUCT USED FOR UNKNOWN INDICATION
     Dosage: DOSE: SATURDAY AND SUNDAY REST -1-0
     Route: 048
     Dates: start: 2012, end: 201209
  4. OMEPRAZOLE [Interacting]
     Indication: PRODUCT USED FOR UNKNOWN INDICATION
     Route: 065
     Dates: start: 2012
  5. SPIRIVA [Concomitant]
  6. REVATIO [Concomitant]
  7. KARVEA [Concomitant]
  8. SINTROM [Concomitant]
  9. LANTUS [Concomitant]

REACTIONS (5)
  - Loss of consciousness [Recovered/Resolved]
  - Drug interaction [Unknown]
  - Cardioactive drug level increased [Recovered/Resolved]
  - Vomiting [Recovered/Resolved]
  - Nausea [Recovered/Resolved]
